FAERS Safety Report 13141044 (Version 1)
Quarter: 2017Q1

REPORT INFORMATION
  Report Type: Spontaneous
  Country: CL (occurrence: CL)
  Receive Date: 20170123
  Receipt Date: 20170123
  Transmission Date: 20170428
  Serious: Yes (Hospitalization)
  Sender: FDA-Public Use
  Company Number: PHHY2016CL173997

PATIENT
  Age: 64 Year
  Sex: Male
  Weight: 52 kg

DRUGS (1)
  1. ENTRESTO [Suspect]
     Active Substance: SACUBITRIL\VALSARTAN
     Indication: CARDIAC FAILURE
     Dosage: 100 MG, Q6H
     Route: 048
     Dates: start: 20161122, end: 20161215

REACTIONS (4)
  - Drug prescribing error [Unknown]
  - Renal failure [Recovering/Resolving]
  - Acute kidney injury [Unknown]
  - Cardiorenal syndrome [Unknown]

NARRATIVE: CASE EVENT DATE: 20161210
